FAERS Safety Report 6892839-8 (Version None)
Quarter: 2010Q3

REPORT INFORMATION
  Report Type: 
  Country: None (occurrence: None)
  Receive Date: 20100731
  Receipt Date: 20081009
  Transmission Date: 20110219
  Serious: No
  Sender: FDA-Public Use
  Company Number: US-PFIZER INC-2008084882

PATIENT
  Sex: Male
  Weight: 105.4 kg

DRUGS (6)
  1. NEURONTIN [Suspect]
     Indication: PAIN IN EXTREMITY
     Dates: start: 20080909
  2. ABILIFY [Concomitant]
  3. AVODART [Concomitant]
  4. LYRICA [Concomitant]
  5. LASIX [Concomitant]
  6. DRUG, UNSPECIFIED [Concomitant]

REACTIONS (1)
  - DRUG INEFFECTIVE [None]
